FAERS Safety Report 4332220-9 (Version None)
Quarter: 2004Q1

REPORT INFORMATION
  Report Type: 
  Country: None (occurrence: None)
  Receive Date: 20040329
  Receipt Date: 20040206
  Transmission Date: 20041129
  Serious: Yes (Hospitalization)
  Sender: FDA-Public Use
  Company Number: 1559

PATIENT
  Age: 70 Year
  Sex: Female

DRUGS (1)
  1. AVINZA [Suspect]
     Indication: PAIN
     Dosage: 300 MG QD PO
     Route: 048

REACTIONS (3)
  - ENCEPHALOPATHY [None]
  - RESPIRATORY DEPRESSION [None]
  - RESPIRATORY FAILURE [None]
